FAERS Safety Report 9969558 (Version 1)
Quarter: 2014Q1

REPORT INFORMATION
  Report Type: Spontaneous
  Country: US (occurrence: None)
  Receive Date: 20140304
  Receipt Date: 20140304
  Transmission Date: 20141002
  Serious: No
  Sender: FDA-Public Use
  Company Number: None

PATIENT
  Age: 69 Year
  Sex: Female
  Weight: 97 kg

DRUGS (10)
  1. BENTYL [Suspect]
     Route: 048
     Dates: start: 20140223, end: 20140223
  2. FIBERCON [Concomitant]
  3. BYSTOLIC [Concomitant]
  4. GLIPIZIDE [Concomitant]
  5. METFORMIN [Concomitant]
  6. NORCO [Concomitant]
  7. NICOTIN PATCH [Concomitant]
  8. FLAGYL [Suspect]
  9. LYRICA [Suspect]
  10. SLOW NIACIN [Concomitant]

REACTIONS (2)
  - Pruritus [None]
  - Flushing [None]
